FAERS Safety Report 9795444 (Version 4)
Quarter: 2014Q2

REPORT INFORMATION
  Report Type: Spontaneous
  Country: JP (occurrence: JP)
  Receive Date: 20140103
  Receipt Date: 20140516
  Transmission Date: 20141212
  Serious: Yes (Life-Threatening, Hospitalization)
  Sender: FDA-Public Use
  Company Number: JP-BAYER-2013-158146

PATIENT
  Age: 62 Year
  Sex: Female
  Weight: 54 kg

DRUGS (11)
  1. STIVARGA [Suspect]
     Indication: COLON CANCER
     Dosage: 160 MG, QD
     Route: 048
     Dates: start: 20131211, end: 20131223
  2. BARACLUDE [Concomitant]
     Indication: HEPATITIS B
     Dosage: 0.5 MG, QD
     Route: 048
     Dates: start: 20111202
  3. NEXIUM [Concomitant]
     Dosage: 20 MG, QD
     Route: 048
     Dates: start: 20111205
  4. OMEPRAL [Concomitant]
     Dosage: 20 MG, QD
     Route: 048
     Dates: start: 20111205
  5. HACHIAZULE [Concomitant]
     Dosage: 3 DF DAILY
     Route: 002
     Dates: start: 20120110
  6. GOSHAJINKIGAN [Concomitant]
     Dosage: DAILY DOSE 7.5 G
     Route: 048
     Dates: start: 20120611
  7. MUCOSTA [Concomitant]
     Dosage: DAILY DOSE 3 DF
     Route: 048
     Dates: start: 20111214
  8. JUZENTAIHOTO [Concomitant]
     Dosage: DAILY DOSE 7.5 G
     Route: 048
     Dates: start: 20120813
  9. MAGNESIUM OXIDE [Concomitant]
     Dosage: DAILY DOSE 2 G
     Route: 048
     Dates: start: 20111205
  10. HIRUDOID [Concomitant]
     Indication: DRUG TOXICITY PROPHYLAXIS
     Dosage: UNK UNK, QS
     Route: 061
     Dates: start: 20130128
  11. HIRUDOID [Concomitant]
     Indication: RASH

REACTIONS (4)
  - Disseminated intravascular coagulation [Recovered/Resolved]
  - Hepatic function abnormal [Recovering/Resolving]
  - Dermatitis exfoliative [Recovered/Resolved]
  - Pyrexia [Recovering/Resolving]
